FAERS Safety Report 7495798-2 (Version None)
Quarter: 2011Q2

REPORT INFORMATION
  Report Type: 
  Country: None (occurrence: None)
  Receive Date: 20110523
  Receipt Date: 20110511
  Transmission Date: 20111010
  Serious: Yes (Disabling)
  Sender: FDA-Public Use
  Company Number: CA-ELI_LILLY_AND_COMPANY-CA201105003013

PATIENT
  Sex: Male

DRUGS (6)
  1. CLONAZEPAM [Concomitant]
  2. VALPROIC ACID [Concomitant]
  3. ZYPREXA [Suspect]
     Dosage: 5 MG, UNK
  4. ZYPREXA [Suspect]
     Dosage: 7.5 MG, EACH EVENING
     Dates: start: 20020227
  5. LORAZEPAM [Concomitant]
  6. PAXIL [Concomitant]

REACTIONS (2)
  - DIABETES MELLITUS [None]
  - BRAIN INJURY [None]
